FAERS Safety Report 20959621 (Version 2)
Quarter: 2024Q4

REPORT INFORMATION
  Report Type: Report from Study
  Country: JP (occurrence: JP)
  Receive Date: 20220614
  Receipt Date: 20241010
  Transmission Date: 20250115
  Serious: Yes (Death, Other)
  Sender: ALEXION PHARMACEUTICALS
  Company Number: 2022A216376

PATIENT
  Age: 73 Year
  Weight: 39 kg

DRUGS (130)
  1. ANIFROLUMAB [Suspect]
     Active Substance: ANIFROLUMAB
     Indication: Systemic lupus erythematosus
     Dosage: 300 MILLIGRAM, UNK, FREQUENCY: Q4WK
  2. ANIFROLUMAB [Suspect]
     Active Substance: ANIFROLUMAB
     Dosage: 300 MILLIGRAM, UNK, FREQUENCY: Q4WK
  3. ANIFROLUMAB [Suspect]
     Active Substance: ANIFROLUMAB
     Dosage: 300 MILLIGRAM, UNK, FREQUENCY: Q4WK
  4. ANIFROLUMAB [Suspect]
     Active Substance: ANIFROLUMAB
     Dosage: 300 MILLIGRAM, UNK, FREQUENCY: Q4WK
  5. CORONAVIRUS MODIFIED URIDINE RNA VACCINE(SARS-COV-2) [Concomitant]
     Dosage: DOSE UNKNOWN, THE FIRST DOSE
  6. CORONAVIRUS MODIFIED URIDINE RNA VACCINE(SARS-COV-2) [Concomitant]
     Dosage: DOSE UNKNOWN, THE FIRST DOSE
     Route: 065
  7. CORONAVIRUS MODIFIED URIDINE RNA VACCINE(SARS-COV-2) [Concomitant]
     Dosage: DOSE UNKNOWN, THE FIRST DOSE
     Route: 065
  8. CORONAVIRUS MODIFIED URIDINE RNA VACCINE(SARS-COV-2) [Concomitant]
     Dosage: DOSE UNKNOWN, THE FIRST DOSE
  9. CORONAVIRUS MODIFIED URIDINE RNA VACCINE(SARS-COV-2) [Concomitant]
     Dosage: DOSE UNKNOWN, THE SECOND DOSE
     Route: 065
  10. CORONAVIRUS MODIFIED URIDINE RNA VACCINE(SARS-COV-2) [Concomitant]
     Dosage: DOSE UNKNOWN, THE SECOND DOSE
  11. CORONAVIRUS MODIFIED URIDINE RNA VACCINE(SARS-COV-2) [Concomitant]
     Dosage: DOSE UNKNOWN, THE SECOND DOSE
     Route: 065
  12. CORONAVIRUS MODIFIED URIDINE RNA VACCINE(SARS-COV-2) [Concomitant]
     Dosage: DOSE UNKNOWN, THE SECOND DOSE
  13. CORONAVIRUS MODIFIED URIDINE RNA VACCINE(SARS-COV-2) [Concomitant]
     Dosage: DOSE UNKNOWN, THE THIRD DOSE
     Route: 065
  14. CORONAVIRUS MODIFIED URIDINE RNA VACCINE(SARS-COV-2) [Concomitant]
     Dosage: DOSE UNKNOWN, THE THIRD DOSE
     Route: 065
  15. CORONAVIRUS MODIFIED URIDINE RNA VACCINE(SARS-COV-2) [Concomitant]
     Dosage: DOSE UNKNOWN, THE THIRD DOSE
  16. CORONAVIRUS MODIFIED URIDINE RNA VACCINE(SARS-COV-2) [Concomitant]
     Dosage: DOSE UNKNOWN, THE THIRD DOSE
  17. CORONAVIRUS MODIFIED URIDINE RNA VACCINE(SARS-COV-2) [Concomitant]
     Dosage: DOSE UNKNOWN, THE FOURTH DOSE
     Route: 065
  18. CORONAVIRUS MODIFIED URIDINE RNA VACCINE(SARS-COV-2) [Concomitant]
     Dosage: DOSE UNKNOWN, THE FOURTH DOSE
  19. CORONAVIRUS MODIFIED URIDINE RNA VACCINE(SARS-COV-2) [Concomitant]
     Dosage: DOSE UNKNOWN, THE FOURTH DOSE
     Route: 065
  20. CORONAVIRUS MODIFIED URIDINE RNA VACCINE(SARS-COV-2) [Concomitant]
     Dosage: DOSE UNKNOWN, THE FOURTH DOSE
  21. PREDNISOLONE [Concomitant]
     Active Substance: PREDNISOLONE
     Indication: Systemic lupus erythematosus
     Dosage: NUMBER OF SEPARATE DOSAGES UNKNOWN, ANOTHER MANUFACTURE A
  22. PREDNISOLONE [Concomitant]
     Active Substance: PREDNISOLONE
     Dosage: NUMBER OF SEPARATE DOSAGES UNKNOWN, ANOTHER MANUFACTURE A
  23. PREDNISOLONE [Concomitant]
     Active Substance: PREDNISOLONE
     Dosage: NUMBER OF SEPARATE DOSAGES UNKNOWN, ANOTHER MANUFACTURE A
  24. PREDNISOLONE [Concomitant]
     Active Substance: PREDNISOLONE
     Dosage: NUMBER OF SEPARATE DOSAGES UNKNOWN, ANOTHER MANUFACTURE A
  25. PREDNISOLONE [Concomitant]
     Active Substance: PREDNISOLONE
     Dosage: NUMBER OF SEPARATE DOSAGES UNKNOWN, ANOTHER MANUFACTURE B
  26. PREDNISOLONE [Concomitant]
     Active Substance: PREDNISOLONE
     Dosage: NUMBER OF SEPARATE DOSAGES UNKNOWN, ANOTHER MANUFACTURE B
  27. PREDNISOLONE [Concomitant]
     Active Substance: PREDNISOLONE
     Dosage: NUMBER OF SEPARATE DOSAGES UNKNOWN, ANOTHER MANUFACTURE B
  28. PREDNISOLONE [Concomitant]
     Active Substance: PREDNISOLONE
     Dosage: NUMBER OF SEPARATE DOSAGES UNKNOWN, ANOTHER MANUFACTURE B
  29. PREDNISOLONE [Concomitant]
     Active Substance: PREDNISOLONE
     Dosage: NUMBER OF SEPARATE DOSAGES UNKNOWN, ANOTHER MANUFACTURE B
  30. PREDNISOLONE [Concomitant]
     Active Substance: PREDNISOLONE
     Dosage: NUMBER OF SEPARATE DOSAGES UNKNOWN, ANOTHER MANUFACTURE B
  31. PREDNISOLONE [Concomitant]
     Active Substance: PREDNISOLONE
     Dosage: NUMBER OF SEPARATE DOSAGES UNKNOWN, ANOTHER MANUFACTURE B
  32. PREDNISOLONE [Concomitant]
     Active Substance: PREDNISOLONE
     Dosage: NUMBER OF SEPARATE DOSAGES UNKNOWN, ANOTHER MANUFACTURE B
  33. PREDNISOLONE [Concomitant]
     Active Substance: PREDNISOLONE
     Dosage: NUMBER OF SEPARATE DOSAGES UNKNOWN, ANOTHER MANUFACTURE B
  34. PREDNISOLONE [Concomitant]
     Active Substance: PREDNISOLONE
     Dosage: NUMBER OF SEPARATE DOSAGES UNKNOWN, ANOTHER MANUFACTURE B
  35. PREDNISOLONE [Concomitant]
     Active Substance: PREDNISOLONE
     Dosage: NUMBER OF SEPARATE DOSAGES UNKNOWN, ANOTHER MANUFACTURE B
  36. PREDNISOLONE [Concomitant]
     Active Substance: PREDNISOLONE
     Dosage: NUMBER OF SEPARATE DOSAGES UNKNOWN, ANOTHER MANUFACTURE B
  37. PREDNISOLONE [Concomitant]
     Active Substance: PREDNISOLONE
     Dosage: NUMBER OF SEPARATE DOSAGES UNKNOWN, ANOTHER MANUFACTURE A
  38. PREDNISOLONE [Concomitant]
     Active Substance: PREDNISOLONE
     Dosage: NUMBER OF SEPARATE DOSAGES UNKNOWN, ANOTHER MANUFACTURE A
  39. PREDNISOLONE [Concomitant]
     Active Substance: PREDNISOLONE
     Dosage: NUMBER OF SEPARATE DOSAGES UNKNOWN, ANOTHER MANUFACTURE A
  40. PREDNISOLONE [Concomitant]
     Active Substance: PREDNISOLONE
     Dosage: NUMBER OF SEPARATE DOSAGES UNKNOWN, ANOTHER MANUFACTURE A
  41. PREDNISOLONE [Concomitant]
     Active Substance: PREDNISOLONE
     Dosage: NUMBER OF SEPARATE DOSAGES UNKNOWN, ANOTHER MANUFACTURE A
  42. PREDNISOLONE [Concomitant]
     Active Substance: PREDNISOLONE
     Dosage: NUMBER OF SEPARATE DOSAGES UNKNOWN, ANOTHER MANUFACTURE A
  43. PREDNISOLONE [Concomitant]
     Active Substance: PREDNISOLONE
     Dosage: NUMBER OF SEPARATE DOSAGES UNKNOWN, ANOTHER MANUFACTURE A
  44. PREDNISOLONE [Concomitant]
     Active Substance: PREDNISOLONE
     Dosage: NUMBER OF SEPARATE DOSAGES UNKNOWN, ANOTHER MANUFACTURE A
  45. PREDNISOLONE [Concomitant]
     Active Substance: PREDNISOLONE
     Dosage: NUMBER OF SEPARATE DOSAGES UNKNOWN, ANOTHER MANUFACTURE A
  46. PREDNISOLONE [Concomitant]
     Active Substance: PREDNISOLONE
     Dosage: NUMBER OF SEPARATE DOSAGES UNKNOWN, ANOTHER MANUFACTURE A
  47. PREDNISOLONE [Concomitant]
     Active Substance: PREDNISOLONE
     Dosage: NUMBER OF SEPARATE DOSAGES UNKNOWN, ANOTHER MANUFACTURE A
  48. PREDNISOLONE [Concomitant]
     Active Substance: PREDNISOLONE
     Dosage: NUMBER OF SEPARATE DOSAGES UNKNOWN, ANOTHER MANUFACTURE A
  49. PREDNISOLONE [Concomitant]
     Active Substance: PREDNISOLONE
     Dosage: NUMBER OF SEPARATE DOSAGES UNKNOWN, ANOTHER MANUFACTURE A
  50. PREDNISOLONE [Concomitant]
     Active Substance: PREDNISOLONE
     Dosage: NUMBER OF SEPARATE DOSAGES UNKNOWN, ANOTHER MANUFACTURE A
  51. PREDNISOLONE [Concomitant]
     Active Substance: PREDNISOLONE
     Dosage: NUMBER OF SEPARATE DOSAGES UNKNOWN, ANOTHER MANUFACTURE A
  52. PREDNISOLONE [Concomitant]
     Active Substance: PREDNISOLONE
     Dosage: NUMBER OF SEPARATE DOSAGES UNKNOWN, ANOTHER MANUFACTURE A
  53. PREDNISOLONE [Concomitant]
     Active Substance: PREDNISOLONE
     Dosage: NUMBER OF SEPARATE DOSAGES UNKNOWN, ANOTHER MANUFACTURE A
  54. PREDNISOLONE [Concomitant]
     Active Substance: PREDNISOLONE
     Dosage: NUMBER OF SEPARATE DOSAGES UNKNOWN, ANOTHER MANUFACTURE A
  55. PREDNISOLONE [Concomitant]
     Active Substance: PREDNISOLONE
     Dosage: NUMBER OF SEPARATE DOSAGES UNKNOWN, ANOTHER MANUFACTURE A
  56. PREDNISOLONE [Concomitant]
     Active Substance: PREDNISOLONE
     Dosage: NUMBER OF SEPARATE DOSAGES UNKNOWN, ANOTHER MANUFACTURE A
  57. PREDNISOLONE [Concomitant]
     Active Substance: PREDNISOLONE
     Dosage: NUMBER OF SEPARATE DOSAGES UNKNOWN, ANOTHER MANUFACTURE A
  58. PREDNISOLONE [Concomitant]
     Active Substance: PREDNISOLONE
     Dosage: NUMBER OF SEPARATE DOSAGES UNKNOWN, ANOTHER MANUFACTURE A
  59. PREDNISOLONE [Concomitant]
     Active Substance: PREDNISOLONE
     Dosage: NUMBER OF SEPARATE DOSAGES UNKNOWN, ANOTHER MANUFACTURE A
  60. PREDNISOLONE [Concomitant]
     Active Substance: PREDNISOLONE
     Dosage: NUMBER OF SEPARATE DOSAGES UNKNOWN, ANOTHER MANUFACTURE A
  61. PREDNISOLONE [Concomitant]
     Active Substance: PREDNISOLONE
     Dosage: NUMBER OF SEPARATE DOSAGES UNKNOWN, ANOTHER MANUFACTURE A
  62. PREDNISOLONE [Concomitant]
     Active Substance: PREDNISOLONE
     Dosage: NUMBER OF SEPARATE DOSAGES UNKNOWN, ANOTHER MANUFACTURE A
  63. PREDNISOLONE [Concomitant]
     Active Substance: PREDNISOLONE
     Dosage: NUMBER OF SEPARATE DOSAGES UNKNOWN, ANOTHER MANUFACTURE A
  64. PREDNISOLONE [Concomitant]
     Active Substance: PREDNISOLONE
     Dosage: NUMBER OF SEPARATE DOSAGES UNKNOWN, ANOTHER MANUFACTURE A
  65. PREDNISOLONE [Concomitant]
     Active Substance: PREDNISOLONE
     Dosage: NUMBER OF SEPARATE DOSAGES UNKNOWN, ANOTHER MANUFACTURE A
  66. PREDNISOLONE [Concomitant]
     Active Substance: PREDNISOLONE
     Dosage: NUMBER OF SEPARATE DOSAGES UNKNOWN, ANOTHER MANUFACTURE A
  67. PREDNISOLONE [Concomitant]
     Active Substance: PREDNISOLONE
     Dosage: NUMBER OF SEPARATE DOSAGES UNKNOWN, ANOTHER MANUFACTURE A
  68. PREDNISOLONE [Concomitant]
     Active Substance: PREDNISOLONE
     Dosage: NUMBER OF SEPARATE DOSAGES UNKNOWN, ANOTHER MANUFACTURE A
  69. PREDNISOLONE [Concomitant]
     Active Substance: PREDNISOLONE
     Dosage: NUMBER OF SEPARATE DOSAGES UNKNOWN, ANOTHER MANUFACTURE B
  70. PREDNISOLONE [Concomitant]
     Active Substance: PREDNISOLONE
     Dosage: NUMBER OF SEPARATE DOSAGES UNKNOWN, ANOTHER MANUFACTURE B
  71. PREDNISOLONE [Concomitant]
     Active Substance: PREDNISOLONE
     Dosage: NUMBER OF SEPARATE DOSAGES UNKNOWN, ANOTHER MANUFACTURE B
  72. PREDNISOLONE [Concomitant]
     Active Substance: PREDNISOLONE
     Dosage: NUMBER OF SEPARATE DOSAGES UNKNOWN, ANOTHER MANUFACTURE B
  73. PREDNISOLONE [Concomitant]
     Active Substance: PREDNISOLONE
     Dosage: NUMBER OF SEPARATE DOSAGES UNKNOWN, ANOTHER MANUFACTURE B
  74. PREDNISOLONE [Concomitant]
     Active Substance: PREDNISOLONE
     Dosage: NUMBER OF SEPARATE DOSAGES UNKNOWN, ANOTHER MANUFACTURE B
  75. PREDNISOLONE [Concomitant]
     Active Substance: PREDNISOLONE
     Dosage: NUMBER OF SEPARATE DOSAGES UNKNOWN, ANOTHER MANUFACTURE B
  76. PREDNISOLONE [Concomitant]
     Active Substance: PREDNISOLONE
     Dosage: NUMBER OF SEPARATE DOSAGES UNKNOWN, ANOTHER MANUFACTURE B
  77. PREDNISOLONE [Concomitant]
     Active Substance: PREDNISOLONE
     Dosage: NUMBER OF SEPARATE DOSAGES UNKNOWN, ANOTHER MANUFACTURE B
  78. PREDNISOLONE [Concomitant]
     Active Substance: PREDNISOLONE
     Dosage: NUMBER OF SEPARATE DOSAGES UNKNOWN, ANOTHER MANUFACTURE B
  79. PREDNISOLONE [Concomitant]
     Active Substance: PREDNISOLONE
     Dosage: NUMBER OF SEPARATE DOSAGES UNKNOWN, ANOTHER MANUFACTURE B
  80. PREDNISOLONE [Concomitant]
     Active Substance: PREDNISOLONE
     Dosage: NUMBER OF SEPARATE DOSAGES UNKNOWN, ANOTHER MANUFACTURE B
  81. PREDNISOLONE [Concomitant]
     Active Substance: PREDNISOLONE
     Dosage: NUMBER OF SEPARATE DOSAGES UNKNOWN, ANOTHER MANUFACTURE A
  82. PREDNISOLONE [Concomitant]
     Active Substance: PREDNISOLONE
     Dosage: NUMBER OF SEPARATE DOSAGES UNKNOWN, ANOTHER MANUFACTURE A
  83. PREDNISOLONE [Concomitant]
     Active Substance: PREDNISOLONE
     Dosage: NUMBER OF SEPARATE DOSAGES UNKNOWN, ANOTHER MANUFACTURE A
  84. PREDNISOLONE [Concomitant]
     Active Substance: PREDNISOLONE
     Dosage: NUMBER OF SEPARATE DOSAGES UNKNOWN, ANOTHER MANUFACTURE A
  85. PREDNISOLONE [Concomitant]
     Active Substance: PREDNISOLONE
     Dosage: NUMBER OF SEPARATE DOSAGES UNKNOWN, ANOTHER MANUFACTURE B
  86. PREDNISOLONE [Concomitant]
     Active Substance: PREDNISOLONE
     Dosage: NUMBER OF SEPARATE DOSAGES UNKNOWN, ANOTHER MANUFACTURE B
  87. PREDNISOLONE [Concomitant]
     Active Substance: PREDNISOLONE
     Dosage: NUMBER OF SEPARATE DOSAGES UNKNOWN, ANOTHER MANUFACTURE B
  88. PREDNISOLONE [Concomitant]
     Active Substance: PREDNISOLONE
     Dosage: NUMBER OF SEPARATE DOSAGES UNKNOWN, ANOTHER MANUFACTURE B
  89. PREDNISOLONE [Concomitant]
     Active Substance: PREDNISOLONE
     Dosage: NUMBER OF SEPARATE DOSAGES UNKNOWN, ANOTHER MANUFACTURE B
  90. PREDNISOLONE [Concomitant]
     Active Substance: PREDNISOLONE
     Dosage: NUMBER OF SEPARATE DOSAGES UNKNOWN, ANOTHER MANUFACTURE B
  91. PREDNISOLONE [Concomitant]
     Active Substance: PREDNISOLONE
     Dosage: NUMBER OF SEPARATE DOSAGES UNKNOWN, ANOTHER MANUFACTURE B
  92. PREDNISOLONE [Concomitant]
     Active Substance: PREDNISOLONE
     Dosage: NUMBER OF SEPARATE DOSAGES UNKNOWN, ANOTHER MANUFACTURE B
  93. PREDNISOLONE [Concomitant]
     Active Substance: PREDNISOLONE
     Dosage: NUMBER OF SEPARATE DOSAGES UNKNOWN, ANOTHER MANUFACTURE B
  94. PREDNISOLONE [Concomitant]
     Active Substance: PREDNISOLONE
     Dosage: NUMBER OF SEPARATE DOSAGES UNKNOWN, ANOTHER MANUFACTURE B
  95. PREDNISOLONE [Concomitant]
     Active Substance: PREDNISOLONE
     Dosage: NUMBER OF SEPARATE DOSAGES UNKNOWN, ANOTHER MANUFACTURE B
  96. PREDNISOLONE [Concomitant]
     Active Substance: PREDNISOLONE
     Dosage: NUMBER OF SEPARATE DOSAGES UNKNOWN, ANOTHER MANUFACTURE B
  97. PREDNISOLONE [Concomitant]
     Active Substance: PREDNISOLONE
     Dosage: NUMBER OF SEPARATE DOSAGES UNKNOWN, ANOTHER MANUFACTURE B
  98. PREDNISOLONE [Concomitant]
     Active Substance: PREDNISOLONE
     Dosage: NUMBER OF SEPARATE DOSAGES UNKNOWN, ANOTHER MANUFACTURE B
  99. PREDNISOLONE [Concomitant]
     Active Substance: PREDNISOLONE
     Dosage: NUMBER OF SEPARATE DOSAGES UNKNOWN, ANOTHER MANUFACTURE B
  100. PREDNISOLONE [Concomitant]
     Active Substance: PREDNISOLONE
     Dosage: NUMBER OF SEPARATE DOSAGES UNKNOWN, ANOTHER MANUFACTURE B
  101. PREDNISOLONE [Concomitant]
     Active Substance: PREDNISOLONE
     Dosage: NUMBER OF SEPARATE DOSAGES UNKNOWN, ANOTHER MANUFACTURE B
  102. PREDNISOLONE [Concomitant]
     Active Substance: PREDNISOLONE
     Dosage: NUMBER OF SEPARATE DOSAGES UNKNOWN, ANOTHER MANUFACTURE B
  103. PREDNISOLONE [Concomitant]
     Active Substance: PREDNISOLONE
     Dosage: NUMBER OF SEPARATE DOSAGES UNKNOWN, ANOTHER MANUFACTURE B
  104. PREDNISOLONE [Concomitant]
     Active Substance: PREDNISOLONE
     Dosage: NUMBER OF SEPARATE DOSAGES UNKNOWN, ANOTHER MANUFACTURE B
  105. PREDNISOLONE [Concomitant]
     Active Substance: PREDNISOLONE
     Dosage: NUMBER OF SEPARATE DOSAGES UNKNOWN, ANOTHER MANUFACTURE A
  106. PREDNISOLONE [Concomitant]
     Active Substance: PREDNISOLONE
     Dosage: NUMBER OF SEPARATE DOSAGES UNKNOWN, ANOTHER MANUFACTURE A
  107. PREDNISOLONE [Concomitant]
     Active Substance: PREDNISOLONE
     Dosage: NUMBER OF SEPARATE DOSAGES UNKNOWN, ANOTHER MANUFACTURE A
  108. PREDNISOLONE [Concomitant]
     Active Substance: PREDNISOLONE
     Dosage: NUMBER OF SEPARATE DOSAGES UNKNOWN, ANOTHER MANUFACTURE A
  109. LANSOPRAZOLE [Concomitant]
     Active Substance: LANSOPRAZOLE
     Indication: Prophylaxis
     Dosage: NUMBER OF SEPARATE DOSAGES UNKNOWN
  110. LANSOPRAZOLE [Concomitant]
     Active Substance: LANSOPRAZOLE
     Dosage: NUMBER OF SEPARATE DOSAGES UNKNOWN
  111. LANSOPRAZOLE [Concomitant]
     Active Substance: LANSOPRAZOLE
     Dosage: NUMBER OF SEPARATE DOSAGES UNKNOWN
  112. LANSOPRAZOLE [Concomitant]
     Active Substance: LANSOPRAZOLE
     Dosage: NUMBER OF SEPARATE DOSAGES UNKNOWN
  113. MECOLAMIN [Concomitant]
     Indication: Prophylaxis
     Dosage: NUMBER OF SEPARATE DOSAGES UNKNOWN
  114. MECOLAMIN [Concomitant]
     Dosage: NUMBER OF SEPARATE DOSAGES UNKNOWN
  115. MECOLAMIN [Concomitant]
     Dosage: NUMBER OF SEPARATE DOSAGES UNKNOWN
  116. MECOLAMIN [Concomitant]
     Dosage: NUMBER OF SEPARATE DOSAGES UNKNOWN
  117. PREGABALIN [Concomitant]
     Active Substance: PREGABALIN
     Indication: Polyarteritis nodosa
     Dosage: NUMBER OF SEPARATE DOSAGES UNKNOWN
  118. PREGABALIN [Concomitant]
     Active Substance: PREGABALIN
     Dosage: NUMBER OF SEPARATE DOSAGES UNKNOWN
  119. PREGABALIN [Concomitant]
     Active Substance: PREGABALIN
     Dosage: NUMBER OF SEPARATE DOSAGES UNKNOWN
  120. PREGABALIN [Concomitant]
     Active Substance: PREGABALIN
     Dosage: NUMBER OF SEPARATE DOSAGES UNKNOWN
  121. PRAVASTATIN SODIUM [Concomitant]
     Active Substance: PRAVASTATIN SODIUM
     Indication: Dyslipidaemia
     Dosage: NUMBER OF SEPARATE DOSAGES UNKNOWN
  122. PRAVASTATIN SODIUM [Concomitant]
     Active Substance: PRAVASTATIN SODIUM
     Dosage: NUMBER OF SEPARATE DOSAGES UNKNOWN
  123. PRAVASTATIN SODIUM [Concomitant]
     Active Substance: PRAVASTATIN SODIUM
     Dosage: NUMBER OF SEPARATE DOSAGES UNKNOWN
  124. PRAVASTATIN SODIUM [Concomitant]
     Active Substance: PRAVASTATIN SODIUM
     Dosage: NUMBER OF SEPARATE DOSAGES UNKNOWN
  125. MIROGABALIN BESYLATE [Concomitant]
     Active Substance: MIROGABALIN BESYLATE
     Indication: Otitis media chronic
     Dosage: NUMBER OF SEPARATE DOSAGES UNKNOWN
  126. MIROGABALIN BESYLATE [Concomitant]
     Active Substance: MIROGABALIN BESYLATE
     Dosage: NUMBER OF SEPARATE DOSAGES UNKNOWN
  127. MIROGABALIN BESYLATE [Concomitant]
     Active Substance: MIROGABALIN BESYLATE
     Dosage: NUMBER OF SEPARATE DOSAGES UNKNOWN
  128. MIROGABALIN BESYLATE [Concomitant]
     Active Substance: MIROGABALIN BESYLATE
     Dosage: NUMBER OF SEPARATE DOSAGES UNKNOWN
  129. VALPROATE SODIUM [Concomitant]
     Active Substance: VALPROATE SODIUM
     Indication: Otitis media chronic
     Dosage: NUMBER OF SEPARATE DOSAGES UNKNOWN
  130. VALPROATE SODIUM [Concomitant]
     Active Substance: VALPROATE SODIUM
     Dosage: NUMBER OF SEPARATE DOSAGES UNKNOWN

REACTIONS (3)
  - Dysphonia [Recovering/Resolving]
  - Death [Fatal]
  - Cerebral infarction [Unknown]
